FAERS Safety Report 12426597 (Version 1)
Quarter: 2016Q2

REPORT INFORMATION
  Report Type: Spontaneous
  Country: FR (occurrence: FR)
  Receive Date: 20160601
  Receipt Date: 20160601
  Transmission Date: 20160815
  Serious: Yes (Disabling, Congenital Anomaly)
  Sender: FDA-Public Use
  Company Number: FR-JNJFOC-20160526342

PATIENT
  Age: 0 Year
  Sex: Male

DRUGS (3)
  1. DEPAKINE CHRONO [Suspect]
     Active Substance: VALPROATE SODIUM
     Indication: EPILEPSY
     Dosage: DURING FIRST TRIMESTER
     Route: 064
  2. EPITOMAX [Suspect]
     Active Substance: TOPIRAMATE
     Indication: EPILEPSY
     Route: 064
  3. DEPAKINE CHRONO [Suspect]
     Active Substance: VALPROATE SODIUM
     Indication: EPILEPSY
     Dosage: SECOND AND THIRD TRIMESTERS
     Route: 064

REACTIONS (8)
  - Foetal anticonvulsant syndrome [Unknown]
  - Cerebral cyst [Unknown]
  - Autism [Unknown]
  - Arthropathy [Unknown]
  - Abnormal behaviour [Unknown]
  - Intellectual disability [Unknown]
  - Anxiety [Unknown]
  - Foetal exposure during pregnancy [Recovered/Resolved]

NARRATIVE: CASE EVENT DATE: 2006
